FAERS Safety Report 8463035-8 (Version None)
Quarter: 2012Q2

REPORT INFORMATION
  Report Type: 
  Country: None (occurrence: None)
  Receive Date: 20120323
  Receipt Date: 20110610
  Transmission Date: 20120825
  Serious: Yes (Hospitalization)
  Sender: FDA-Public Use
  Company Number: 163-21880-11061825

PATIENT
  Age: 81 Year
  Sex: Male

DRUGS (2)
  1. REVLIMID [Suspect]
     Indication: MULTIPLE MYELOMA
     Dosage: 10 MG, 1 IN 1 D, PO; 10 MG, DAILY FOR 21 DAYS THEN 7 DAYS OFF, PO
     Route: 048
     Dates: start: 20100101
  2. REVLIMID [Suspect]
     Indication: MULTIPLE MYELOMA
     Dosage: 10 MG, 1 IN 1 D, PO; 10 MG, DAILY FOR 21 DAYS THEN 7 DAYS OFF, PO
     Route: 048
     Dates: start: 20110202, end: 20110608

REACTIONS (1)
  - VERTIGO [None]
